FAERS Safety Report 14124321 (Version 5)
Quarter: 2018Q2

REPORT INFORMATION
  Report Type: Spontaneous
  Country: US (occurrence: US)
  Receive Date: 20171025
  Receipt Date: 20180403
  Transmission Date: 20180711
  Serious: Yes (Other)
  Sender: FDA-Public Use
  Company Number: US-PFIZER INC-2017459497

PATIENT
  Age: 69 Year
  Sex: Female

DRUGS (1)
  1. XELJANZ [Suspect]
     Active Substance: TOFACITINIB CITRATE
     Indication: RHEUMATOID ARTHRITIS
     Dosage: 5 MG, 1X/DAY (ONCE DAILY)
     Route: 048

REACTIONS (6)
  - Diverticulitis [Unknown]
  - Abdominal pain [Unknown]
  - Urinary tract infection [Unknown]
  - Prescribed underdose [Unknown]
  - Drug ineffective [Unknown]
  - Diarrhoea [Unknown]
